FAERS Safety Report 5517454-X (Version None)
Quarter: 2007Q4

REPORT INFORMATION
  Report Type: 
  Country: None (occurrence: None)
  Receive Date: 20071114
  Receipt Date: 20071112
  Transmission Date: 20080405
  Serious: Yes (Death, Hospitalization)
  Sender: FDA-Public Use
  Company Number: PHBS2007ES10329

PATIENT
  Sex: Female

DRUGS (1)
  1. ZOMETA [Suspect]
     Dates: start: 20060301, end: 20070501

REACTIONS (3)
  - ATRIAL FIBRILLATION [None]
  - DYSPNOEA [None]
  - NEOPLASM PROGRESSION [None]
